FAERS Safety Report 4284163-7 (Version None)
Quarter: 2004Q1

REPORT INFORMATION
  Report Type: 
  Country: None (occurrence: None)
  Receive Date: 20040203
  Receipt Date: 20040122
  Transmission Date: 20041129
  Serious: Yes (Disabling)
  Sender: FDA-Public Use
  Company Number: CH-GLAXOSMITHKLINE-B0320758A

PATIENT
  Sex: Male
  Weight: 71 kg

DRUGS (2)
  1. DEROXAT [Suspect]
     Indication: DEPRESSION
     Dosage: 30MG PER DAY
     Route: 048
  2. FENTANYL [Suspect]
     Indication: PAIN
     Dosage: 1.8MG PER DAY
     Route: 065
     Dates: end: 20040107

REACTIONS (15)
  - BLADDER CANCER RECURRENT [None]
  - CONFUSIONAL STATE [None]
  - DRUG INTERACTION [None]
  - DRUG TOXICITY [None]
  - ENCEPHALOPATHY [None]
  - HALLUCINATION, VISUAL [None]
  - HYPERCALCAEMIA [None]
  - HYPONATRAEMIA [None]
  - MIOSIS [None]
  - MYOCLONUS [None]
  - PAIN IN EXTREMITY [None]
  - PELVIC PAIN [None]
  - PROCTALGIA [None]
  - SOMNOLENCE [None]
  - SPEECH DISORDER [None]
